FAERS Safety Report 4998746-X (Version None)
Quarter: 2006Q2

REPORT INFORMATION
  Report Type: 
  Country: None (occurrence: None)
  Receive Date: 20060509
  Receipt Date: 20060427
  Transmission Date: 20061013
  Serious: Yes (Hospitalization)
  Sender: FDA-Public Use
  Company Number: 8010903

PATIENT
  Age: 20 Year
  Sex: Female
  Weight: 56.8 kg

DRUGS (4)
  1. KEPPRA [Suspect]
     Indication: CONVULSION
     Dosage: 1250 MG PO
     Route: 048
     Dates: start: 20000601, end: 20041101
  2. KEPPRA [Suspect]
     Indication: CONVULSION
     Dosage: 1250 MG 2/D PO
     Route: 048
     Dates: start: 20041102
  3. PRIMACARE [Concomitant]
  4. HYDROCODONE [Concomitant]

REACTIONS (5)
  - ABORTION SPONTANEOUS [None]
  - DRUG EXPOSURE DURING PREGNANCY [None]
  - KIDNEY INFECTION [None]
  - PREGNANCY [None]
  - PULMONARY OEDEMA [None]
